FAERS Safety Report 24150977 (Version 1)
Quarter: 2024Q3

REPORT INFORMATION
  Report Type: Spontaneous
  Country: RO (occurrence: RO)
  Receive Date: 20240730
  Receipt Date: 20240730
  Transmission Date: 20241017
  Serious: Yes (Other)
  Sender: AMGEN
  Company Number: RO-AMGEN-ROUSP2024146772

PATIENT
  Age: 38 Year
  Sex: Female

DRUGS (1)
  1. PROLIA [Suspect]
     Active Substance: DENOSUMAB
     Indication: Hypercalcaemia
     Dosage: 60 MILLIGRAM
     Route: 058

REACTIONS (8)
  - Parathyroid tumour [Unknown]
  - Renal impairment [Unknown]
  - Nephrolithiasis [Unknown]
  - Hungry bone syndrome [Unknown]
  - Hyperparathyroidism primary [Unknown]
  - Brown tumour [Unknown]
  - Hyperglycaemia [Unknown]
  - Off label use [Unknown]
